FAERS Safety Report 5198956-5 (Version None)
Quarter: 2006Q4

REPORT INFORMATION
  Report Type: 
  Country: None (occurrence: None)
  Receive Date: 20060921
  Receipt Date: 20051219
  Transmission Date: 20070319
  Serious: Yes (Other)
  Sender: FDA-Public Use
  Company Number: PHEH2005US13586

PATIENT
  Age: 76 Year
  Sex: Male

DRUGS (1)
  1. ZELNORM [Suspect]
     Indication: CONSTIPATION
     Dosage: ONCE/SINGLE, ORAL
     Route: 048
     Dates: start: 20051214

REACTIONS (5)
  - BLOOD PRESSURE DECREASED [None]
  - DIZZINESS [None]
  - FEELING DRUNK [None]
  - HEART RATE INCREASED [None]
  - HEART RATE IRREGULAR [None]
